FAERS Safety Report 6911594-6 (Version None)
Quarter: 2010Q3

REPORT INFORMATION
  Report Type: 
  Country: None (occurrence: None)
  Receive Date: 20100806
  Receipt Date: 20100727
  Transmission Date: 20110219
  Serious: Yes (Other)
  Sender: FDA-Public Use
  Company Number: US-PFIZER INC-2008078324

PATIENT
  Sex: Female
  Weight: 71.655 kg

DRUGS (26)
  1. CHANTIX [Suspect]
     Indication: SMOKING CESSATION THERAPY
     Dosage: 0.5 MG, 1X/DAY
     Route: 048
     Dates: start: 20080801, end: 20100101
  2. CHANTIX [Suspect]
     Dosage: 0.5 MG, 1X/DAY
     Route: 048
     Dates: start: 20090701, end: 20090901
  3. CHANTIX [Suspect]
     Dosage: UNK
     Dates: start: 20100701
  4. CHANTIX [Suspect]
     Dosage: 0.5 MG, 1X/DAY
     Route: 048
     Dates: start: 20100606
  5. CHANTIX [Suspect]
     Dosage: 0.5 MG, 2X/DAY
     Dates: start: 20100601
  6. CHANTIX [Suspect]
     Dosage: 0.5 MG, 1X/DAY
     Dates: start: 20100628
  7. CHANTIX [Suspect]
     Dosage: 1 MG, 2X/DAY
  8. CLONAZEPAM [Concomitant]
     Indication: BIPOLAR DISORDER
     Dosage: 1 MG, 3X/DAY
     Route: 048
  9. CLONAZEPAM [Concomitant]
     Indication: ANXIETY
  10. CLONAZEPAM [Concomitant]
     Indication: PSYCHOTIC DISORDER
  11. CLONAZEPAM [Concomitant]
     Indication: TREMOR
  12. SEROQUEL [Concomitant]
     Indication: BIPOLAR DISORDER
     Dosage: 200 MG, 2X/DAY
  13. LITHIUM [Concomitant]
     Indication: BIPOLAR DISORDER
     Dosage: 300 MG, 2X/DAY
     Route: 048
  14. LITHIUM [Concomitant]
     Indication: PSYCHOTIC DISORDER
  15. LITHIUM [Concomitant]
     Indication: TREMOR
  16. ABILIFY [Concomitant]
     Indication: BIPOLAR DISORDER
     Dosage: 5 MG, 1X/DAY
     Route: 048
  17. ABILIFY [Concomitant]
     Indication: DEPRESSION
  18. ABILIFY [Concomitant]
     Indication: PSYCHOTIC DISORDER
  19. ABILIFY [Concomitant]
     Indication: TREMOR
  20. TRAZEPAM [Concomitant]
  21. PROPRANOLOL [Concomitant]
     Indication: BIPOLAR DISORDER
     Dosage: UNK
  22. PROPRANOLOL [Concomitant]
     Indication: PSYCHOTIC DISORDER
  23. PROPRANOLOL [Concomitant]
     Indication: TREMOR
  24. ESOMEPRAZOLE [Concomitant]
     Indication: BIPOLAR DISORDER
     Dosage: UNK
  25. ESOMEPRAZOLE [Concomitant]
     Indication: PSYCHOTIC DISORDER
  26. ESOMEPRAZOLE [Concomitant]
     Indication: TREMOR

REACTIONS (2)
  - APATHY [None]
  - FEELING ABNORMAL [None]
